FAERS Safety Report 8285709-4 (Version None)
Quarter: 2012Q2

REPORT INFORMATION
  Report Type: 
  Country: None (occurrence: None)
  Receive Date: 20120413
  Receipt Date: 20120404
  Transmission Date: 20120825
  Serious: Yes (Other)
  Sender: FDA-Public Use
  Company Number: SG-ROCHE-1058909

PATIENT
  Age: 50 Year
  Sex: Male

DRUGS (1)
  1. LUCENTIS [Suspect]
     Indication: VITREOUS HAEMORRHAGE
     Route: 050

REACTIONS (1)
  - RETINOPATHY PROLIFERATIVE [None]
